FAERS Safety Report 6599694-4 (Version None)
Quarter: 2010Q1

REPORT INFORMATION
  Report Type: 
  Country: None (occurrence: None)
  Receive Date: 20100224
  Receipt Date: 20100215
  Transmission Date: 20100710
  Serious: Yes (Other)
  Sender: FDA-Public Use
  Company Number: US-BRACCO-004051

PATIENT
  Age: 85 Year
  Sex: Female

DRUGS (3)
  1. CONTRAST MEDIA [Suspect]
     Indication: CAROTID ARTERY STENT INSERTION
     Dosage: DOSE GIVEN: 0.66 MMOL/KG (PATIENT WEIGHT NOT REPORTED)
     Route: 013
  2. CONTRAST MEDIA [Suspect]
     Indication: ARTERIOGRAM CAROTID
     Dosage: DOSE GIVEN: 0.66 MMOL/KG (PATIENT WEIGHT NOT REPORTED)
     Route: 013
  3. ISOVUE-128 [Suspect]
     Indication: ANGIOGRAM CEREBRAL
     Dosage: DOSE GIVEN: 2.91 ML/KG (PATIENT WEIGHT NOT REPORTED)
     Route: 013

REACTIONS (1)
  - NEPHROPATHY TOXIC [None]
